APPROVED DRUG PRODUCT: INDOMETHACIN
Active Ingredient: INDOMETHACIN
Strength: 50MG
Dosage Form/Route: CAPSULE;ORAL
Application: A070674 | Product #001 | TE Code: AB
Applicant: SANDOZ INC
Approved: Apr 29, 1987 | RLD: No | RS: No | Type: RX